FAERS Safety Report 13110774 (Version 1)
Quarter: 2017Q1

REPORT INFORMATION
  Report Type: Spontaneous
  Country: US (occurrence: US)
  Receive Date: 20170112
  Receipt Date: 20170112
  Transmission Date: 20170428
  Serious: Yes (Other)
  Sender: FDA-Public Use
  Company Number: US-TEVA-728928USA

PATIENT
  Age: 16 Year
  Sex: Female

DRUGS (1)
  1. PORTIA [Suspect]
     Active Substance: ETHINYL ESTRADIOL\LEVONORGESTREL
     Indication: MENSTRUATION IRREGULAR
     Dosage: 0.15/0.03 MG
     Dates: start: 2016

REACTIONS (3)
  - Embolism arterial [Unknown]
  - Peripheral artery occlusion [Unknown]
  - Product use issue [Unknown]
